FAERS Safety Report 8859486 (Version 2)
Quarter: 2013Q1

REPORT INFORMATION
  Report Type: Spontaneous
  Country: US (occurrence: None)
  Receive Date: 20121023
  Receipt Date: 20121031
  Transmission Date: 20140127
  Serious: Yes (Hospitalization, Other)
  Sender: FDA-Public Use
  Company Number: 2012AP003409

PATIENT
  Age: 25 Year
  Sex: Male

DRUGS (14)
  1. OMEPRAZOLE DELAYED-RELEASE CAPSULES, USP [Suspect]
     Indication: PROPHYLAXIS AGAINST GASTROINTESTINAL ULCER
  2. METHOTREXATE [Suspect]
     Indication: SPINDLE CELL SARCOMA
     Route: 042
  3. DOXORUBICIN [Concomitant]
  4. CYCLOPHOSPHAMIDE [Concomitant]
  5. METHOTREXATE [Concomitant]
  6. VINCRISTINE [Concomitant]
  7. RANITIDINE [Concomitant]
  8. CISPLATIN [Concomitant]
  9. FOLINIC ACID [Concomitant]
  10. DEXAMETHASONE [Concomitant]
  11. HYDROCONE [Concomitant]
  12. PROCHLORPERAZINE [Concomitant]
  13. LANSOPRAZOLE [Concomitant]
  14. DOXORUBICIN [Concomitant]

REACTIONS (7)
  - Toxicity to various agents [None]
  - Grand mal convulsion [None]
  - Renal failure acute [None]
  - Mucosal inflammation [None]
  - Thrombocytopenia [None]
  - Drug interaction [None]
  - Headache [None]
